FAERS Safety Report 8549554-4 (Version None)
Quarter: 2012Q3

REPORT INFORMATION
  Report Type: 
  Country: None (occurrence: None)
  Receive Date: 20120730
  Receipt Date: 20120723
  Transmission Date: 20120928
  Serious: Yes (Other)
  Sender: FDA-Public Use
  Company Number: US-PFIZER INC-2012145182

PATIENT
  Sex: Female
  Weight: 65.76 kg

DRUGS (13)
  1. CITRACAL + D [Concomitant]
     Indication: BONE DISORDER
     Dosage: 24 DF, DAILY
  2. IODINE [Concomitant]
     Dosage: 150 UG, DAILY
  3. LECITHIN [Concomitant]
  4. FLAX SEED/HERBAL NOS/PSYLLIUM [Concomitant]
  5. VITAMIN B-12 [Concomitant]
     Dosage: 500 UG, DAILY
  6. BIOTIN [Concomitant]
     Dosage: 500 UG, DAILY
  7. CHROMIUM [Concomitant]
     Dosage: 200 UG, 2X/DAY
  8. GLIMEPIRIDE [Suspect]
     Indication: DIABETES MELLITUS
     Dosage: 4 MG, 2X/DAY
     Dates: start: 19900101
  9. METFORMIN HYDROCHLORIDE [Suspect]
     Indication: DIABETES MELLITUS
     Dosage: 500 MG, 2X/DAY
     Dates: start: 19900101
  10. METHENAMINE HIPPURATE [Concomitant]
     Indication: URINARY TRACT INFECTION
     Dosage: 500 MG, 2X/DAY
  11. MAGNESIUM ASPARTATE [Concomitant]
     Indication: MUSCLE SPASMS
  12. LIPITOR [Suspect]
     Indication: BLOOD CHOLESTEROL ABNORMAL
     Dosage: 20 MG, UNK
     Route: 048
  13. VALERIAN ROOT [Concomitant]
     Indication: STRESS
     Dosage: 125 MG, 4X/DAY

REACTIONS (19)
  - MUSCULOSKELETAL DISORDER [None]
  - COLON INJURY [None]
  - WEIGHT DECREASED [None]
  - BLOOD GLUCOSE DECREASED [None]
  - NEOPLASM MALIGNANT [None]
  - APHASIA [None]
  - MYALGIA [None]
  - DRY EYE [None]
  - SYNCOPE [None]
  - AMNESIA [None]
  - PAIN [None]
  - RASH PRURITIC [None]
  - DRUG INEFFECTIVE [None]
  - HYPOKINESIA [None]
  - ARTHRALGIA [None]
  - MUSCLE SPASMS [None]
  - FALL [None]
  - URTICARIA [None]
  - DRUG HYPERSENSITIVITY [None]
